FAERS Safety Report 12110958 (Version 1)
Quarter: 2016Q1

REPORT INFORMATION
  Report Type: Spontaneous
  Country: FR (occurrence: FR)
  Receive Date: 20160224
  Receipt Date: 20160224
  Transmission Date: 20160526
  Serious: Yes (Hospitalization)
  Sender: FDA-Public Use
  Company Number: FR-TEVA-635300ISR

PATIENT
  Age: 13 Year
  Sex: Female

DRUGS (4)
  1. ANTADYS 100 MG [Suspect]
     Active Substance: FLURBIPROFEN
     Indication: POISONING DELIBERATE
     Dosage: 1.5 GRAM DAILY;
     Route: 048
     Dates: start: 20151104, end: 20151104
  2. SPASFON [Suspect]
     Active Substance: PHLOROGLUCINOL
     Indication: POISONING DELIBERATE
     Dosage: TOTAL DOSAGE: BETWEEN 240 MG AND 480 MG OF SPASFON
     Route: 048
     Dates: start: 20151104, end: 20151104
  3. PARACETAMOL [Suspect]
     Active Substance: ACETAMINOPHEN
     Indication: POISONING DELIBERATE
     Dosage: 3 GRAM DAILY;
     Route: 048
     Dates: start: 20151104, end: 20151104
  4. TETRAZEPAM 50 MG [Suspect]
     Active Substance: TETRAZEPAM
     Indication: POISONING DELIBERATE
     Dosage: 500 MILLIGRAM DAILY;
     Route: 048
     Dates: start: 20151104, end: 20151104

REACTIONS (2)
  - Agitation [Recovered/Resolved]
  - Abdominal pain upper [Recovered/Resolved]

NARRATIVE: CASE EVENT DATE: 20151104
